FAERS Safety Report 25102382 (Version 3)
Quarter: 2025Q2

REPORT INFORMATION
  Report Type: Report from Study
  Country: IL (occurrence: IL)
  Receive Date: 20250320
  Receipt Date: 20250610
  Transmission Date: 20250717
  Serious: Yes (Death, Other)
  Sender: ABBVIE
  Company Number: IL-ABBVIE-5725741

PATIENT
  Age: 75 Year
  Sex: Male

DRUGS (2)
  1. CARBIDOPA\LEVODOPA [Suspect]
     Active Substance: CARBIDOPA\LEVODOPA
     Indication: Parkinson^s disease
     Route: 050
     Dates: start: 20231025
  2. CARBIDOPA\LEVODOPA [Suspect]
     Active Substance: CARBIDOPA\LEVODOPA
     Route: 050

REACTIONS (13)
  - Lung neoplasm malignant [Fatal]
  - Stress [Unknown]
  - Dysphagia [Unknown]
  - Weight decreased [Unknown]
  - Hypocalcaemia [Unknown]
  - On and off phenomenon [Unknown]
  - Dyspnoea [Unknown]
  - Pulmonary imaging procedure abnormal [Unknown]
  - Dyspnoea [Unknown]
  - Stoma site discharge [Unknown]
  - Constipation [Unknown]
  - Urinary retention [Unknown]
  - Stoma site irritation [Unknown]

NARRATIVE: CASE EVENT DATE: 20250424
